FAERS Safety Report 18792655 (Version 1)
Quarter: 2021Q1

REPORT INFORMATION
  Report Type: Spontaneous
  Country: US (occurrence: US)
  Receive Date: 20210127
  Receipt Date: 20210127
  Transmission Date: 20210419
  Serious: No
  Sender: FDA-Public Use
  Company Number: US-ALLERGAN-2003074US

PATIENT
  Sex: Female

DRUGS (4)
  1. ALORA [Suspect]
     Active Substance: ESTRADIOL
     Indication: POSTOPERATIVE CARE
     Dosage: 0.75 MG
     Route: 062
  2. ESTRADIOL TRANSDERMAL SYSTEM [Concomitant]
     Active Substance: ESTRADIOL
     Indication: POSTOPERATIVE CARE
     Dosage: 0.005 MG
     Route: 062
     Dates: start: 2008
  3. ESTRADIOL TRANSDERMAL SYSTEM [Concomitant]
     Active Substance: ESTRADIOL
     Indication: POSTOPERATIVE CARE
     Dosage: 0.75 MG
     Route: 062
     Dates: start: 2008
  4. ALORA [Concomitant]
     Active Substance: ESTRADIOL
     Indication: POSTOPERATIVE CARE
     Dosage: 0.005 MG
     Route: 062

REACTIONS (2)
  - Intentional product misuse [Unknown]
  - Product adhesion issue [Unknown]
